FAERS Safety Report 5079856-8 (Version None)
Quarter: 2006Q3

REPORT INFORMATION
  Report Type: 
  Country: None (occurrence: None)
  Receive Date: 20060815
  Receipt Date: 20060804
  Transmission Date: 20061208
  Serious: Yes (Other)
  Sender: FDA-Public Use
  Company Number: PHBS2006VE11934

PATIENT
  Age: 78 Year
  Sex: Male

DRUGS (5)
  1. ZELMAC [Suspect]
     Indication: CONSTIPATION
     Dosage: 6 MG, TID
     Route: 048
  2. ESOMEPRAZOLE MAGNESIUM [Concomitant]
     Indication: PROPHYLAXIS
     Dosage: 30 MG, QD
     Dates: start: 20060515
  3. PREGABALIN [Concomitant]
     Dosage: 75 MG, BID
     Route: 048
     Dates: start: 20060501
  4. RIVOTRIL [Concomitant]
     Dosage: 2.5 MG/DAY
     Route: 048
  5. TRYPTANOL [Concomitant]
     Dosage: 25 MG/DAY
     Route: 048

REACTIONS (2)
  - ARRHYTHMIA [None]
  - GALLBLADDER OPERATION [None]
